FAERS Safety Report 14181771 (Version 1)
Quarter: 2017Q4

REPORT INFORMATION
  Report Type: Spontaneous
  Country: US (occurrence: US)
  Receive Date: 20171111
  Receipt Date: 20171111
  Transmission Date: 20180321
  Serious: Yes (Disabling)
  Sender: FDA-Public Use
  Company Number: None

PATIENT
  Age: 56 Year
  Sex: Female
  Weight: 58.95 kg

DRUGS (3)
  1. FISH OIL [Concomitant]
     Active Substance: FISH OIL
  2. CLOBETASOL [Suspect]
     Active Substance: CLOBETASOL
     Indication: ALOPECIA
     Dosage: ?          QUANTITY:1 SPRAY(S);?
     Route: 061
     Dates: start: 20080501, end: 20130425
  3. CLOBETASOL [Suspect]
     Active Substance: CLOBETASOL
     Indication: SEBORRHOEA
     Dosage: ?          QUANTITY:1 SPRAY(S);?
     Route: 061
     Dates: start: 20080501, end: 20130425

REACTIONS (16)
  - Lethargy [None]
  - Temperature regulation disorder [None]
  - Skin burning sensation [None]
  - Depression [None]
  - Joint swelling [None]
  - Steroid withdrawal syndrome [None]
  - Pruritus generalised [None]
  - Pain of skin [None]
  - Rash [None]
  - Feeling cold [None]
  - Alopecia [None]
  - Peripheral swelling [None]
  - Erythema [None]
  - Skin exfoliation [None]
  - Asthenia [None]
  - Insomnia [None]

NARRATIVE: CASE EVENT DATE: 20130425
